FAERS Safety Report 9472451 (Version 1)
Quarter: 2013Q3

REPORT INFORMATION
  Report Type: Spontaneous
  Country: US (occurrence: US)
  Receive Date: 20130823
  Receipt Date: 20130823
  Transmission Date: 20140515
  Serious: No
  Sender: FDA-Public Use
  Company Number: US-009507513-1308USA010343

PATIENT
  Age: 66 Year
  Sex: Female

DRUGS (3)
  1. JANUVIA [Suspect]
     Indication: DIABETES MELLITUS
     Dosage: 50 MG, QAM, IN THE MORNING
     Route: 048
     Dates: start: 201210, end: 2013
  2. INSULIN [Concomitant]
     Dosage: UNKNOWN
  3. GLIPIZIDE [Concomitant]
     Dosage: UNKNOWN

REACTIONS (2)
  - Pruritus [Recovering/Resolving]
  - Urticaria [Recovering/Resolving]
